FAERS Safety Report 8590411-5 (Version None)
Quarter: 2012Q3

REPORT INFORMATION
  Report Type: 
  Country: None (occurrence: None)
  Receive Date: 20120813
  Receipt Date: 20120803
  Transmission Date: 20120928
  Serious: Yes (Hospitalization, Other)
  Sender: FDA-Public Use
  Company Number: US-009507513-2008-174108-NL

PATIENT

DRUGS (3)
  1. MK-0805 [Concomitant]
     Indication: PRODUCT USED FOR UNKNOWN INDICATION
     Dosage: 20 MG, QD
  2. NUVARING [Suspect]
     Indication: CONTRACEPTION
     Dosage: DOSE TEXT: 3 WEEKS IN, 1 WEEK OUT, CONTINUING: NO
     Route: 067
     Dates: start: 20040804, end: 20041214
  3. LEVOTHYROXINE SODIUM [Concomitant]
     Indication: PRODUCT USED FOR UNKNOWN INDICATION
     Dosage: 25 ?G, UNK
     Route: 048
     Dates: start: 20081101

REACTIONS (8)
  - LIVEDO RETICULARIS [None]
  - CONVULSION [None]
  - DYSPNOEA [None]
  - VENOUS INSUFFICIENCY [None]
  - MUSCULOSKELETAL PAIN [None]
  - THROMBOTIC STROKE [None]
  - VENOUS THROMBOSIS [None]
  - ASTHENIA [None]
